FAERS Safety Report 15087569 (Version 1)
Quarter: 2018Q2

REPORT INFORMATION
  Report Type: Report from Study
  Country: None (occurrence: US)
  Receive Date: 20180629
  Receipt Date: 20180629
  Transmission Date: 20180711
  Serious: Yes (Other)
  Sender: FDA-Public Use
  Company Number: US-ABBVIE-18K-163-2376701-00

PATIENT
  Age: 67 Year
  Sex: Female

DRUGS (1)
  1. HUMIRA [Suspect]
     Active Substance: ADALIMUMAB
     Indication: PSORIASIS
     Route: 058

REACTIONS (5)
  - Foot deformity [Unknown]
  - Exostosis [Unknown]
  - Medical device implantation [Not Recovered/Not Resolved]
  - Post procedural complication [Unknown]
  - Gait inability [Unknown]

NARRATIVE: CASE EVENT DATE: 2018
